FAERS Safety Report 4325271-1 (Version None)
Quarter: 2004Q1

REPORT INFORMATION
  Report Type: 
  Country: None (occurrence: None)
  Receive Date: 20040324
  Receipt Date: 20040304
  Transmission Date: 20041129
  Serious: Yes (Other)
  Sender: FDA-Public Use
  Company Number: GBS040314578

PATIENT
  Sex: Female

DRUGS (1)
  1. HUMULIN-HUMAN INSULIN (RDNA) [Suspect]
     Dosage: 36 MG

REACTIONS (3)
  - BLOOD GLUCOSE INCREASED [None]
  - DEVICE FAILURE [None]
  - PHARMACEUTICAL PRODUCT COMPLAINT [None]
